FAERS Safety Report 4591385-4 (Version None)
Quarter: 2005Q1

REPORT INFORMATION
  Report Type: 
  Country: None (occurrence: None)
  Receive Date: 20050222
  Receipt Date: 20050214
  Transmission Date: 20050727
  Serious: Yes (Hospitalization)
  Sender: FDA-Public Use
  Company Number: 2005-02-1095

PATIENT
  Age: 46 Year
  Sex: Male

DRUGS (2)
  1. PEG-INTRON [Suspect]
     Dosage: 120 MCG SUBCUTANEOUS
     Route: 058
     Dates: start: 20041025, end: 20050212
  2. RIBAVIRIN [Suspect]
     Dosage: 800 MG QD ORAL
     Route: 048
     Dates: start: 20041015, end: 20050212

REACTIONS (1)
  - MENINGITIS [None]
